FAERS Safety Report 9738901 (Version 3)
Quarter: 2014Q1

REPORT INFORMATION
  Report Type: Spontaneous
  Country: IT (occurrence: IT)
  Receive Date: 20131209
  Receipt Date: 20140327
  Transmission Date: 20141002
  Serious: Yes (Hospitalization)
  Sender: FDA-Public Use
  Company Number: IT-JNJFOC-20131202961

PATIENT
  Age: 54 Year
  Sex: Female

DRUGS (14)
  1. SPORANOX [Suspect]
     Indication: FUNGAL INFECTION
     Route: 048
     Dates: start: 20131113, end: 20131115
  2. TEGRETOL [Interacting]
     Indication: BIPOLAR DISORDER
     Route: 048
     Dates: start: 20110501, end: 20131118
  3. TEGRETOL [Interacting]
     Indication: BIPOLAR DISORDER
     Route: 048
  4. CARBOLITHIUM [Suspect]
     Indication: BIPOLAR DISORDER
     Route: 048
  5. CARBOLITHIUM [Suspect]
     Indication: BIPOLAR DISORDER
     Dosage: GRADUALLY INCREASED TO 2 TABLET/DIE
     Route: 048
  6. CARBOLITHIUM [Suspect]
     Indication: BIPOLAR DISORDER
     Route: 048
     Dates: start: 19950101, end: 20131118
  7. TACHIPIRINA [Concomitant]
     Indication: PYREXIA
     Route: 048
     Dates: start: 20131113, end: 20131115
  8. CHLORPROMAZINE [Concomitant]
     Indication: PRODUCT USED FOR UNKNOWN INDICATION
     Dates: start: 20130801, end: 20131118
  9. CHLORPROMAZINE [Concomitant]
     Indication: PRODUCT USED FOR UNKNOWN INDICATION
  10. CHLORPROMAZINE [Concomitant]
     Indication: PRODUCT USED FOR UNKNOWN INDICATION
     Dates: start: 20130801, end: 20131118
  11. CHLORPROMAZINE [Concomitant]
     Indication: PRODUCT USED FOR UNKNOWN INDICATION
  12. SERENASE [Concomitant]
     Indication: PRODUCT USED FOR UNKNOWN INDICATION
     Route: 048
     Dates: start: 20130801, end: 20131118
  13. VALIUM [Concomitant]
     Indication: PRODUCT USED FOR UNKNOWN INDICATION
     Route: 048
     Dates: start: 20121101, end: 20131118
  14. VALIUM [Concomitant]
     Indication: PRODUCT USED FOR UNKNOWN INDICATION
     Dosage: 155 DROPS/ DIE
     Route: 048

REACTIONS (6)
  - Antipsychotic drug level increased [Recovered/Resolved]
  - Confusional state [Recovered/Resolved]
  - Headache [Recovered/Resolved]
  - Drug interaction [Recovered/Resolved]
  - Urinary retention [Recovered/Resolved]
  - Toxicity to various agents [Recovered/Resolved]
